FAERS Safety Report 5893260-1 (Version None)
Quarter: 2008Q3

REPORT INFORMATION
  Report Type: 
  Country: None (occurrence: None)
  Receive Date: 20080922
  Receipt Date: 20080922
  Transmission Date: 20090109
  Serious: Yes (Hospitalization)
  Sender: FDA-Public Use
  Company Number: None

PATIENT
  Sex: Female
  Weight: 66.3 kg

DRUGS (2)
  1. RITUXIMAB (MOAB C2B8 ANTI CD20, CHIMERIC) [Suspect]
     Dosage: 4980 MG
  2. TEMOZOLOMIDE [Suspect]
     Dosage: 3500 MG

REACTIONS (2)
  - DISEASE PROGRESSION [None]
  - LYMPHOPENIA [None]
